FAERS Safety Report 7873683-1 (Version None)
Quarter: 2011Q4

REPORT INFORMATION
  Report Type: 
  Country: None (occurrence: None)
  Receive Date: 20111030
  Receipt Date: 20110509
  Transmission Date: 20120403
  Serious: No
  Sender: FDA-Public Use
  Company Number: US-AMGEN-USASP2011024058

PATIENT
  Age: 55 Year
  Sex: Female
  Weight: 72.562 kg

DRUGS (3)
  1. ENBREL [Suspect]
     Indication: PRODUCT USED FOR UNKNOWN INDICATION
     Dosage: 50 MG, QWK
     Route: 058
  2. TRIAMCINOLON                       /00031901/ [Concomitant]
     Dosage: 0.025 %, UNK
     Route: 061
  3. AMLODIPINE [Concomitant]
     Dosage: 2.5 MG, UNK

REACTIONS (1)
  - DRUG INEFFECTIVE [None]
